FAERS Safety Report 4885437-9 (Version None)
Quarter: 2006Q1

REPORT INFORMATION
  Report Type: 
  Country: None (occurrence: None)
  Receive Date: 20060119
  Receipt Date: 20060109
  Transmission Date: 20060701
  Serious: Yes (Death)
  Sender: FDA-Public Use
  Company Number: AU-ABBOTT-06P-008-0321868-00

PATIENT
  Age: 44 Year
  Sex: Male

DRUGS (4)
  1. LOPINAVIR/RITONAVIR [Suspect]
     Indication: HIV INFECTION
     Dosage: NOT REPORTED
     Dates: start: 20030501
  2. LAMIVUDINE [Suspect]
     Indication: HIV INFECTION
     Dosage: NOT REPORTED
     Dates: start: 20030501
  3. STAVUDINE [Suspect]
     Indication: HIV INFECTION
     Dosage: NOT REPORTED
     Dates: start: 20030501
  4. COTIRMOXAZOLE [Concomitant]
     Indication: PROPHYLAXIS
     Dosage: NOT REPORTED

REACTIONS (5)
  - CEREBRAL ASPERGILLOSIS [None]
  - CONVULSION [None]
  - DYSPHASIA [None]
  - HERPES ZOSTER [None]
  - IMMUNE RECONSTITUTION SYNDROME [None]
